FAERS Safety Report 13541727 (Version 1)
Quarter: 2017Q2

REPORT INFORMATION
  Report Type: Spontaneous
  Country: US (occurrence: US)
  Receive Date: 20170512
  Receipt Date: 20170512
  Transmission Date: 20170830
  Serious: No
  Sender: FDA-Public Use
  Company Number: US-SHIRE-US201710454

PATIENT
  Age: 9 Year
  Sex: Male

DRUGS (1)
  1. VYVANSE [Suspect]
     Active Substance: LISDEXAMFETAMINE DIMESYLATE
     Indication: ATTENTION DEFICIT/HYPERACTIVITY DISORDER
     Dosage: 30 MG PRESCRIBED, CAPSULE OPENED AND PATIENT GIVEN HALF THE DOSE (15MG), UNKNOWN
     Route: 048

REACTIONS (10)
  - Eructation [Recovering/Resolving]
  - Incorrect dose administered [Not Recovered/Not Resolved]
  - Drug effect increased [Recovered/Resolved]
  - Drug prescribing error [Not Recovered/Not Resolved]
  - Drug effect decreased [Unknown]
  - Abdominal pain upper [Recovering/Resolving]
  - Tic [Unknown]
  - Affect lability [Unknown]
  - Therapeutic response unexpected [Unknown]
  - Headache [Recovering/Resolving]
